FAERS Safety Report 18193225 (Version 1)
Quarter: 2020Q3

REPORT INFORMATION
  Report Type: Spontaneous
  Country: US (occurrence: US)
  Receive Date: 20200825
  Receipt Date: 20200825
  Transmission Date: 20201103
  Serious: Yes (Other)
  Sender: FDA-Public Use
  Company Number: US-PFIZER INC-2020326721

PATIENT
  Age: 85 Year
  Sex: Female

DRUGS (1)
  1. LATANOPROST. [Suspect]
     Active Substance: LATANOPROST
     Dosage: UNK, 1X/DAY (TAKING THIS DROP FOR MY EYE EACH NIGHT)

REACTIONS (3)
  - Visual impairment [Unknown]
  - Eye irritation [Unknown]
  - Macular degeneration [Unknown]
